FAERS Safety Report 12085367 (Version 2)
Quarter: 2016Q1

REPORT INFORMATION
  Report Type: Spontaneous
  Country: JP (occurrence: JP)
  Receive Date: 20160217
  Receipt Date: 20160311
  Transmission Date: 20160526
  Serious: Yes (Death, Life-Threatening)
  Sender: FDA-Public Use
  Company Number: JP-ELI_LILLY_AND_COMPANY-JP201602001237

PATIENT
  Age: 85 Year
  Sex: Male
  Weight: 42 kg

DRUGS (2)
  1. ERBITUX [Suspect]
     Active Substance: CETUXIMAB
     Indication: GINGIVAL CANCER
  2. ERBITUX [Suspect]
     Active Substance: CETUXIMAB
     Indication: LIP AND/OR ORAL CAVITY CANCER
     Dosage: 400 MG/M2, UNKNOWN
     Route: 042
     Dates: start: 20160115, end: 20160115

REACTIONS (3)
  - Disseminated intravascular coagulation [Fatal]
  - Malignant neoplasm progression [Fatal]
  - Sepsis [Recovering/Resolving]

NARRATIVE: CASE EVENT DATE: 20160119
